FAERS Safety Report 15301410 (Version 2)
Quarter: 2018Q3

REPORT INFORMATION
  Report Type: Spontaneous
  Country: JP (occurrence: JP)
  Receive Date: 20180821
  Receipt Date: 20180912
  Transmission Date: 20181010
  Serious: Yes (Hospitalization, Other)
  Sender: FDA-Public Use
  Company Number: JP-APOTEX-2018AP019045

PATIENT
  Age: 43 Year
  Sex: Female

DRUGS (9)
  1. QUETIAPINE. [Concomitant]
     Active Substance: QUETIAPINE
     Indication: PSYCHOLOGICAL TRAUMA
     Dosage: UNK
     Route: 065
  2. BROTIZOLAM [Concomitant]
     Active Substance: BROTIZOLAM
     Indication: INSOMNIA
     Dosage: 0.5 MG, PRN
     Route: 065
     Dates: start: 20140126, end: 20140813
  3. MAGMITT [Concomitant]
     Active Substance: MAGNESIUM OXIDE
     Indication: CONSTIPATION
     Dosage: 660 MG, 1D
     Route: 065
     Dates: start: 20140128, end: 20140514
  4. LORAZEPAM. [Concomitant]
     Active Substance: LORAZEPAM
     Indication: ANXIETY
     Dosage: 1 MG, PRN
     Route: 065
     Dates: start: 20140325, end: 20140528
  5. BENZALIN                           /00036201/ [Concomitant]
     Active Substance: NITRAZEPAM
     Indication: INSOMNIA
     Dosage: 10 MG, 1D
     Route: 065
     Dates: start: 20140203, end: 20140514
  6. PAXIL CR [Suspect]
     Active Substance: PAROXETINE HYDROCHLORIDE
     Dosage: 50 MG, 1D
     Route: 048
     Dates: end: 20140512
  7. MEILAX [Concomitant]
     Active Substance: ETHYL LOFLAZEPATE
     Indication: ANXIETY
     Dosage: 1 MG, 1D
     Route: 065
     Dates: start: 20140403, end: 20140514
  8. OLANZAPINE. [Concomitant]
     Active Substance: OLANZAPINE
     Indication: PSYCHOLOGICAL TRAUMA
     Dosage: UNK
     Route: 065
  9. PAXIL CR [Suspect]
     Active Substance: PAROXETINE HYDROCHLORIDE
     Indication: DEPRESSED MOOD
     Dosage: 12.5 MG, 1D
     Route: 048
     Dates: start: 20140403

REACTIONS (3)
  - Electrocardiogram QT prolonged [Recovered/Resolved]
  - Syncope [Recovering/Resolving]
  - Altered state of consciousness [Recovering/Resolving]

NARRATIVE: CASE EVENT DATE: 20140511
